FAERS Safety Report 25946055 (Version 1)
Quarter: 2025Q4

REPORT INFORMATION
  Report Type: Report from Study
  Country: US (occurrence: US)
  Receive Date: 20251021
  Receipt Date: 20251021
  Transmission Date: 20260118
  Serious: Yes (Death)
  Sender: ABBVIE
  Company Number: US-ABBVIE-6509687

PATIENT
  Age: 66 Year
  Sex: Female
  Weight: 86.7 kg

DRUGS (3)
  1. CARIPRAZINE [Suspect]
     Active Substance: CARIPRAZINE
     Indication: Bipolar I disorder
     Route: 048
     Dates: start: 20250617, end: 20250812
  2. CARIPRAZINE [Suspect]
     Active Substance: CARIPRAZINE
     Indication: Bipolar I disorder
     Route: 048
     Dates: start: 20250813
  3. RYBELSUS [Concomitant]
     Active Substance: SEMAGLUTIDE
     Indication: Type 2 diabetes mellitus
     Route: 048
     Dates: start: 20240625

REACTIONS (2)
  - Diabetic ketoacidosis [Fatal]
  - Multiple organ dysfunction syndrome [Fatal]

NARRATIVE: CASE EVENT DATE: 20251011
